FAERS Safety Report 9216898 (Version 1)
Quarter: 2013Q2

REPORT INFORMATION
  Report Type: Spontaneous
  Country: US (occurrence: None)
  Receive Date: 20130403
  Receipt Date: 20130403
  Transmission Date: 20140414
  Serious: Yes (Other)
  Sender: FDA-Public Use
  Company Number: A1017267A

PATIENT
  Age: 58 Year
  Sex: Female

DRUGS (1)
  1. ALGINIC ACID\ALUMINIUM HYDROXIDE\MAGNESIUM CARBONATE [Suspect]
     Indication: PRODUCT USED FOR UNKNOWN INDICATION
     Route: 048

REACTIONS (2)
  - Haemorrhage [None]
  - Melaena [None]
